FAERS Safety Report 21852470 (Version 1)
Quarter: 2023Q1

REPORT INFORMATION
  Report Type: Spontaneous
  Country: US (occurrence: US)
  Receive Date: 20230112
  Receipt Date: 20230112
  Transmission Date: 20230418
  Serious: Yes (Life-Threatening, Hospitalization, Other)
  Sender: FDA-Public Use
  Company Number: US-MLMSERVICE-20221226-4003365-1

PATIENT
  Age: 42 Year
  Sex: Male

DRUGS (8)
  1. LOPERAMIDE [Suspect]
     Active Substance: LOPERAMIDE
     Indication: Drug dependence
     Dosage: 768 MILLIGRAM, ONCE A DAY
     Route: 065
  2. LOPERAMIDE [Suspect]
     Active Substance: LOPERAMIDE
     Dosage: 200 MILLIGRAM, ONCE A DAY
     Route: 065
  3. CHOLECALCIFEROL [Concomitant]
     Active Substance: CHOLECALCIFEROL
     Indication: Prophylaxis
     Dosage: 4000 INTERNATIONAL UNIT, ONCE A DAY
     Route: 065
  4. ASCORBIC ACID [Concomitant]
     Active Substance: ASCORBIC ACID
     Indication: Prophylaxis
     Dosage: 12000 MILLIGRAM, ONCE A DAY
     Route: 065
  5. ASCORBIC ACID [Concomitant]
     Active Substance: ASCORBIC ACID
     Dosage: 14000 MILLIGRAM, ONCE A DAY
     Route: 065
  6. FISH OIL [Concomitant]
     Active Substance: FISH OIL
     Indication: Prophylaxis
     Dosage: UNK
     Route: 065
  7. ZINC [Concomitant]
     Active Substance: ZINC
     Indication: Prophylaxis
     Dosage: UNK
     Route: 065
  8. MAGNESIUM CITRATE [Concomitant]
     Active Substance: MAGNESIUM CITRATE
     Indication: Prophylaxis
     Dosage: 1200 MILLIGRAM, ONCE A DAY
     Route: 065

REACTIONS (7)
  - Ventricular tachycardia [Recovered/Resolved]
  - Self-medication [Unknown]
  - Long QT syndrome [Unknown]
  - Nodal arrhythmia [Unknown]
  - Loss of consciousness [Unknown]
  - Coronary artery disease [Unknown]
  - Fall [Unknown]
